FAERS Safety Report 15607671 (Version 2)
Quarter: 2019Q1

REPORT INFORMATION
  Report Type: Spontaneous
  Country: GB (occurrence: GB)
  Receive Date: 20181112
  Receipt Date: 20190220
  Transmission Date: 20190417
  Serious: Yes (Life-Threatening, Hospitalization, Disabling, Other)
  Sender: FDA-Public Use
  Company Number: GB-TEVA-2018-GB-974093

PATIENT
  Age: 66 Year
  Sex: Female
  Weight: 85 kg

DRUGS (7)
  1. HERCEPTIN [Concomitant]
     Active Substance: TRASTUZUMAB
  2. DEXAMETHASONE. [Concomitant]
     Active Substance: DEXAMETHASONE
     Route: 065
  3. CHLORPHENAMINE [Concomitant]
     Active Substance: CHLORPHENIRAMINE MALEATE
     Route: 065
  4. TRASTUZUMAB. [Concomitant]
     Active Substance: TRASTUZUMAB
     Route: 065
  5. FRESENIUS KABI PACLITAXEL [Suspect]
     Active Substance: PACLITAXEL
     Indication: ADJUVANT THERAPY
     Route: 042
     Dates: start: 20180719, end: 20180930
  6. ZOLEDRONIC ACID MONOHYDRATE [Concomitant]
     Active Substance: ZOLEDRONIC ACID
     Route: 065
  7. AMLODIPINE MALEATE [Concomitant]
     Active Substance: AMLODIPINE MALEATE
     Route: 065

REACTIONS (6)
  - Dyspnoea [Unknown]
  - Respiratory failure [Unknown]
  - Pulmonary fibrosis [Not Recovered/Not Resolved]
  - Acute interstitial pneumonitis [Recovering/Resolving]
  - Cough [Unknown]
  - Lung infiltration [Unknown]

NARRATIVE: CASE EVENT DATE: 20180930
